FAERS Safety Report 6217677-0 (Version None)
Quarter: 2009Q2

REPORT INFORMATION
  Report Type: 
  Country: None (occurrence: None)
  Receive Date: 20090608
  Receipt Date: 20090526
  Transmission Date: 20091009
  Serious: Yes (Other)
  Sender: FDA-Public Use
  Company Number: CZ-PFIZER INC-2009219510

PATIENT
  Age: 16 Year

DRUGS (5)
  1. METHYLPREDNISOLONE ACETATE AND METHYLPREDNISOLONE AND METHYLPREDNISOLO [Suspect]
     Indication: WEGENER'S GRANULOMATOSIS
     Dosage: UNK MG, UNK
     Route: 048
     Dates: start: 20051001
  2. METHYLPREDNISOLONE AND METHYLPREDNISOLONE ACETATE AND METHYLPREDNISOLO [Suspect]
     Dosage: UNK MG, UNK
     Route: 042
     Dates: start: 20071001
  3. CYCLOPHOSPHAMIDE [Concomitant]
     Dosage: 10/MG/KG
     Route: 042
  4. CO-TRIMOXAZOLE [Concomitant]
     Dosage: 960 MG, 2X/DAY
  5. RITUXIMAB [Concomitant]
     Dosage: UNK
     Route: 042
     Dates: start: 20080601

REACTIONS (2)
  - MUSCLE ATROPHY [None]
  - MUSCULAR WEAKNESS [None]
